FAERS Safety Report 8382702-8 (Version None)
Quarter: 2012Q2

REPORT INFORMATION
  Report Type: 
  Country: None (occurrence: None)
  Receive Date: 20120524
  Receipt Date: 20120328
  Transmission Date: 20120825
  Serious: No
  Sender: FDA-Public Use
  Company Number: US-ALLERGAN-1203171US

PATIENT
  Age: 44 Year
  Sex: Male

DRUGS (2)
  1. LASTACAFT [Suspect]
     Dosage: 1 DROP BOTH EYES, DAILY
     Route: 047
     Dates: start: 20111209, end: 20111201
  2. LASTACAFT [Suspect]
     Indication: EYE ALLERGY
     Dosage: 1 DROP BOTH EYES, DAILY
     Route: 047
     Dates: start: 20120107, end: 20120109

REACTIONS (2)
  - SCLERAL HYPERAEMIA [None]
  - EYELID OEDEMA [None]
